FAERS Safety Report 4518652-4 (Version None)
Quarter: 2005Q1

REPORT INFORMATION
  Report Type: 
  Country: None (occurrence: None)
  Receive Date: 20041029
  Receipt Date: 20040824
  Transmission Date: 20050727
  Serious: No
  Sender: FDA-Public Use
  Company Number: 200416388US

PATIENT

DRUGS (1)
  1. KETEK [Suspect]

REACTIONS (2)
  - NAUSEA [None]
  - VOMITING [None]
